APPROVED DRUG PRODUCT: FENOFIBRATE
Active Ingredient: FENOFIBRATE
Strength: 145MG
Dosage Form/Route: TABLET;ORAL
Application: A090856 | Product #002 | TE Code: AB
Applicant: LUPIN LTD
Approved: Dec 23, 2011 | RLD: No | RS: No | Type: RX